FAERS Safety Report 6900828-X (Version None)
Quarter: 2010Q3

REPORT INFORMATION
  Report Type: 
  Country: None (occurrence: None)
  Receive Date: 20100803
  Receipt Date: 20100726
  Transmission Date: 20110219
  Serious: Yes (Death)
  Sender: FDA-Public Use
  Company Number: US-CELGENEUS-163-21880-10041344

PATIENT
  Sex: Male

DRUGS (6)
  1. REVLIMID [Suspect]
     Indication: MULTIPLE MYELOMA
     Route: 048
     Dates: start: 20080701
  2. REVLIMID [Suspect]
     Route: 048
     Dates: start: 20090501, end: 20100401
  3. DEXAMETHASONE [Concomitant]
     Indication: PRODUCT USED FOR UNKNOWN INDICATION
     Route: 065
     Dates: start: 20080701, end: 20090101
  4. DEXAMETHASONE [Concomitant]
     Route: 065
     Dates: start: 20090101, end: 20100401
  5. VELCADE [Concomitant]
     Indication: PRODUCT USED FOR UNKNOWN INDICATION
     Route: 051
     Dates: start: 20090101, end: 20090501
  6. VELCADE [Concomitant]
     Route: 065
     Dates: start: 20090101, end: 20100401

REACTIONS (3)
  - DISEASE PROGRESSION [None]
  - MULTIPLE MYELOMA [None]
  - SEPSIS [None]
